FAERS Safety Report 12289601 (Version 1)
Quarter: 2016Q2

REPORT INFORMATION
  Report Type: Spontaneous
  Country: US (occurrence: None)
  Receive Date: 20160420
  Receipt Date: 20160420
  Transmission Date: 20160815
  Serious: No
  Sender: FDA-Public Use
  Company Number: None

PATIENT
  Age: 52 Year
  Sex: Female

DRUGS (3)
  1. RIBASPHERE [Suspect]
     Active Substance: RIBAVIRIN
     Indication: HEPATITIS C
     Route: 048
     Dates: start: 20151207
  2. KRILL OIL [Concomitant]
     Active Substance: DIETARY SUPPLEMENT
  3. IRON [Concomitant]
     Active Substance: IRON

REACTIONS (7)
  - Muscle spasms [None]
  - Arthralgia [None]
  - Stomatitis [None]
  - Fatigue [None]
  - Nausea [None]
  - Migraine [None]
  - Insomnia [None]

NARRATIVE: CASE EVENT DATE: 20151207
